FAERS Safety Report 11514363 (Version 1)
Quarter: 2015Q3

REPORT INFORMATION
  Report Type: Spontaneous
  Country: GR (occurrence: GR)
  Receive Date: 20150916
  Receipt Date: 20150916
  Transmission Date: 20151125
  Serious: Yes (Hospitalization)
  Sender: FDA-Public Use
  Company Number: GR-TEVA-592106ISR

PATIENT
  Sex: Female

DRUGS (1)
  1. CAPECITABINE/TEVA [Suspect]
     Active Substance: CAPECITABINE
     Indication: RECTAL CANCER
     Route: 065

REACTIONS (8)
  - Blood pressure decreased [Recovering/Resolving]
  - Local swelling [Recovering/Resolving]
  - Myocardial necrosis marker increased [Recovering/Resolving]
  - Abdominal pain [Recovering/Resolving]
  - Pyrexia [Recovering/Resolving]
  - Gastrointestinal oedema [Recovering/Resolving]
  - Enteritis [Recovering/Resolving]
  - Vomiting [Recovering/Resolving]
